FAERS Safety Report 7354383-3 (Version None)
Quarter: 2011Q1

REPORT INFORMATION
  Report Type: 
  Country: None (occurrence: None)
  Receive Date: 20110316
  Receipt Date: 20110304
  Transmission Date: 20110831
  Serious: Yes (Hospitalization)
  Sender: FDA-Public Use
  Company Number: US-JNJFOC-20110304454

PATIENT

DRUGS (2)
  1. CHILDREN'S IBUPROFEN [Suspect]
     Indication: PYREXIA
  2. CHILDREN'S IBUPROFEN [Suspect]

REACTIONS (1)
  - TOXIC EPIDERMAL NECROLYSIS [None]
